FAERS Safety Report 18577076 (Version 2)
Quarter: 2020Q4

REPORT INFORMATION
  Report Type: Other
  Country: JP (occurrence: JP)
  Receive Date: 20201204
  Receipt Date: 20201208
  Transmission Date: 20210114
  Serious: Yes (Hospitalization, Other)
  Sender: FDA-Public Use
  Company Number: JP-ROCHE-2722406

PATIENT
  Age: 18 Year
  Sex: Female

DRUGS (7)
  1. ETOPOSIDE. [Suspect]
     Active Substance: ETOPOSIDE
     Indication: BONE MARROW CONDITIONING REGIMEN
     Dosage: ON DAY -7,
     Route: 065
  2. PREDNISOLONE. [Suspect]
     Active Substance: PREDNISOLONE
     Indication: IMMUNOSUPPRESSION
     Dosage: FROM 0.25 TO 0.5 MG/KG
     Route: 065
  3. MYCOPHENOLATE MOFETIL. [Suspect]
     Active Substance: MYCOPHENOLATE MOFETIL
     Indication: PROPHYLAXIS AGAINST GRAFT VERSUS HOST DISEASE
     Route: 065
  4. CYCLOPHOSPHAMIDE. [Suspect]
     Active Substance: CYCLOPHOSPHAMIDE
     Indication: BONE MARROW CONDITIONING REGIMEN
     Dosage: ON DAYS -3 AND -2
     Route: 065
  5. METHYLPREDNISOLONE. [Suspect]
     Active Substance: METHYLPREDNISOLONE
     Indication: IMMUNOSUPPRESSION
     Route: 065
  6. TACROLIMUS. [Suspect]
     Active Substance: TACROLIMUS
     Indication: PROPHYLAXIS AGAINST GRAFT VERSUS HOST DISEASE
     Dosage: FROM DAY -1
     Route: 065
  7. METHOTREXATE. [Suspect]
     Active Substance: METHOTREXATE
     Indication: PROPHYLAXIS AGAINST GRAFT VERSUS HOST DISEASE
     Dosage: 15 MG ON DAY +1 AND 10 MG ON DAYS +3, +6, AND +11)
     Route: 065

REACTIONS (7)
  - Myelosuppression [Unknown]
  - Listeriosis [Unknown]
  - Arthritis bacterial [Recovered/Resolved]
  - Mycobacterium kansasii infection [Recovered/Resolved]
  - Renal impairment [Unknown]
  - Thrombocytopenia [Unknown]
  - Osteonecrosis [Recovered/Resolved]
